FAERS Safety Report 9054473 (Version 1)
Quarter: 2013Q1

REPORT INFORMATION
  Report Type: Spontaneous
  Country: US (occurrence: US)
  Receive Date: 20130208
  Receipt Date: 20130208
  Transmission Date: 20140127
  Serious: No
  Sender: FDA-Public Use
  Company Number: US-GLAXOSMITHKLINE-A0982916A

PATIENT
  Age: 75 Year
  Sex: Male

DRUGS (2)
  1. PAXIL [Suspect]
     Route: 065
  2. WELLBUTRIN [Suspect]
     Route: 065

REACTIONS (2)
  - Diarrhoea [Unknown]
  - Drug ineffective [Unknown]
